FAERS Safety Report 8888886 (Version 2)
Quarter: 2012Q4

REPORT INFORMATION
  Report Type: 
  Country: DE (occurrence: DE)
  Receive Date: 20121106
  Receipt Date: 20121108
  Transmission Date: 20130627
  Serious: Yes (Death)
  Sender: FDA-Public Use
  Company Number: PHHY2012DE081282

PATIENT
  Sex: Female

DRUGS (1)
  1. EXELON PATCH [Suspect]
     Dosage: 9.5 mg/ 24 hours
     Route: 062
     Dates: end: 20120905

REACTIONS (2)
  - Road traffic accident [Fatal]
  - Incorrect dose administered [Unknown]
